FAERS Safety Report 8053238-9 (Version None)
Quarter: 2012Q1

REPORT INFORMATION
  Report Type: 
  Country: None (occurrence: None)
  Receive Date: 20120118
  Receipt Date: 20120109
  Transmission Date: 20120608
  Serious: Yes (Hospitalization)
  Sender: FDA-Public Use
  Company Number: US-BAYER-201033133NA

PATIENT
  Age: 39 Year
  Sex: Female
  Weight: 82 kg

DRUGS (3)
  1. YAZ [Suspect]
     Indication: PREMENSTRUAL SYNDROME
     Dosage: UNK
     Dates: start: 20070501, end: 20090601
  2. AMBIEN [Concomitant]
  3. MULTI-VITAMINS [Concomitant]

REACTIONS (4)
  - DEEP VEIN THROMBOSIS [None]
  - PAIN IN EXTREMITY [None]
  - DEPRESSION [None]
  - ANXIETY [None]
